FAERS Safety Report 7304453-0 (Version None)
Quarter: 2011Q1

REPORT INFORMATION
  Report Type: 
  Country: None (occurrence: None)
  Receive Date: 20110221
  Receipt Date: 20100726
  Transmission Date: 20110831
  Serious: Yes (Other)
  Sender: FDA-Public Use
  Company Number: PHHY2010US90556

PATIENT
  Sex: Male

DRUGS (2)
  1. IMATINIB [Suspect]
  2. DASATIMIB [Suspect]

REACTIONS (2)
  - DRUG EXPOSURE BEFORE PREGNANCY [None]
  - PREMATURE BABY [None]
